FAERS Safety Report 8290758 (Version 5)
Quarter: 2013Q4

REPORT INFORMATION
  Report Type: Spontaneous
  Country: US (occurrence: None)
  Receive Date: 20111122
  Receipt Date: 20131226
  Transmission Date: 20140711
  Serious: Yes (Other)
  Sender: FDA-Public Use
  Company Number: PHEH2011US00761

PATIENT
  Age: 43 Year
  Sex: Male
  Weight: 67 kg

DRUGS (3)
  1. GILENYA [Suspect]
     Indication: MULTIPLE SCLEROSIS
     Dosage: 0.5 MG, QD, ORAL
     Route: 048
     Dates: start: 20110802
  2. VITAMIN D (ERGOCALCIFEROL) [Concomitant]
  3. ATRIUM (DIFEBARBAMATE, FEBARBAMATE, PHENOBARBITAL) [Concomitant]

REACTIONS (12)
  - Pain [None]
  - Nausea [None]
  - Feeling abnormal [None]
  - Hepatic enzyme increased [None]
  - Blood glucose increased [None]
  - Mean cell haemoglobin concentration increased [None]
  - Neutrophil count decreased [None]
  - Lymphocyte count decreased [None]
  - Incorrect dose administered [None]
  - Aspartate aminotransferase increased [None]
  - Inappropriate schedule of drug administration [None]
  - Alanine aminotransferase increased [None]
